FAERS Safety Report 20189666 (Version 2)
Quarter: 2021Q4

REPORT INFORMATION
  Report Type: Spontaneous
  Country: US (occurrence: US)
  Receive Date: 20211215
  Receipt Date: 20211229
  Transmission Date: 20220303
  Serious: Yes (Hospitalization)
  Sender: FDA-Public Use
  Company Number: US-TEVA-2021-US-1986916

PATIENT
  Age: 71 Year
  Sex: Female

DRUGS (1)
  1. DOXYCYCLINE [Suspect]
     Active Substance: DOXYCYCLINE
     Indication: Pemphigoid
     Dosage: 200 MILLIGRAM DAILY; RECEIVED THE TREATMENT FOR ABOUT TWO WEEKS BEFORE HOSPITAL PRESENTATION
     Route: 065

REACTIONS (4)
  - Oesophagitis [Recovering/Resolving]
  - Drug-induced liver injury [Recovering/Resolving]
  - Acute hepatic failure [Recovering/Resolving]
  - Hepatic encephalopathy [Recovering/Resolving]
